FAERS Safety Report 18667733 (Version 1)
Quarter: 2020Q4

REPORT INFORMATION
  Report Type: Spontaneous
  Country: HR (occurrence: HR)
  Receive Date: 20201228
  Receipt Date: 20201228
  Transmission Date: 20210114
  Serious: Yes (Other)
  Sender: FDA-Public Use
  Company Number: HR-EMD SERONO-9208682

PATIENT
  Sex: Female

DRUGS (2)
  1. REBIF [Suspect]
     Active Substance: INTERFERON BETA-1A
     Dates: start: 201308, end: 201606
  2. REBIF [Suspect]
     Active Substance: INTERFERON BETA-1A
     Indication: MULTIPLE SCLEROSIS
     Dosage: DOSE: 22 (UNSPECIFIED UNITS)
     Dates: start: 201203, end: 201207

REACTIONS (11)
  - Quadriparesis [Unknown]
  - Menorrhagia [Unknown]
  - Back pain [Unknown]
  - Malnutrition [Not Recovered/Not Resolved]
  - Crying [Unknown]
  - Multiple sclerosis relapse [Unknown]
  - Fall [Unknown]
  - Depressed mood [Unknown]
  - Nervousness [Unknown]
  - Decreased appetite [Unknown]
  - Headache [Unknown]
